FAERS Safety Report 8083663-1 (Version None)
Quarter: 2012Q1

REPORT INFORMATION
  Report Type: 
  Country: None (occurrence: None)
  Receive Date: 20120127
  Receipt Date: 20110110
  Transmission Date: 20120608
  Serious: No
  Sender: FDA-Public Use
  Company Number: US-ABBOTT-11P-163-0696818-00

PATIENT
  Sex: Female
  Weight: 79.45 kg

DRUGS (4)
  1. ACETAMINOPHEN [Concomitant]
     Indication: PAIN
  2. HUMIRA [Suspect]
     Indication: JUVENILE ARTHRITIS
  3. HUMIRA [Suspect]
     Indication: CROHN'S DISEASE
     Route: 058
  4. IBUPROFEN [Concomitant]
     Indication: PAIN

REACTIONS (5)
  - PAIN [None]
  - WEIGHT FLUCTUATION [None]
  - ABDOMINAL PAIN UPPER [None]
  - DIARRHOEA [None]
  - FATIGUE [None]
